FAERS Safety Report 6748435-6 (Version None)
Quarter: 2010Q2

REPORT INFORMATION
  Report Type: 
  Country: None (occurrence: None)
  Receive Date: 20100526
  Receipt Date: 20090508
  Transmission Date: 20101027
  Serious: Yes (Other)
  Sender: FDA-Public Use
  Company Number: 278800

PATIENT
  Age: 69 Year
  Sex: Female
  Weight: 54.4 kg

DRUGS (5)
  1. ACTIVELLA [Suspect]
     Indication: HORMONE REPLACEMENT THERAPY
     Dosage: ORAL
     Route: 048
     Dates: start: 20011101, end: 20020401
  2. ESTROPIPATE [Suspect]
     Indication: HORMONE REPLACEMENT THERAPY
     Dosage: ORAL
     Route: 048
  3. PREMPRO [Suspect]
     Indication: HORMONE REPLACEMENT THERAPY
     Dates: start: 19970101, end: 20010901
  4. PREMARIN [Suspect]
     Indication: HORMONE REPLACEMENT THERAPY
     Dates: start: 19921201, end: 19960501
  5. ACTINOL (PARACETAMOL, PSEUDOEPHEDRINE HYDROCHLORIDE, TRIPROLIDINE HYDR [Concomitant]

REACTIONS (1)
  - BREAST CANCER [None]
